FAERS Safety Report 16716205 (Version 1)
Quarter: 2019Q3

REPORT INFORMATION
  Report Type: Spontaneous
  Country: JP (occurrence: JP)
  Receive Date: 20190819
  Receipt Date: 20190819
  Transmission Date: 20191005
  Serious: Yes (Other)
  Sender: FDA-Public Use
  Company Number: JP-PFIZER INC-2019349571

PATIENT

DRUGS (3)
  1. AZULFIDINE EN-TABS [Suspect]
     Active Substance: SULFASALAZINE
     Indication: RHEUMATIC DISORDER
     Dosage: UNK
  2. PREDONINE [Suspect]
     Active Substance: PREDNISOLONE
     Indication: RHEUMATIC DISORDER
     Dosage: UNK
  3. RHEUMATREX [Suspect]
     Active Substance: METHOTREXATE SODIUM
     Indication: RHEUMATIC DISORDER
     Dosage: UNK

REACTIONS (1)
  - Plasma cell myeloma [Unknown]
